FAERS Safety Report 9557694 (Version 1)
Quarter: 2013Q3

REPORT INFORMATION
  Report Type: Spontaneous
  Country: US (occurrence: None)
  Receive Date: 20130726
  Receipt Date: 20130726
  Transmission Date: 20140515
  Serious: Yes (Hospitalization)
  Sender: FDA-Public Use
  Company Number: UTC-029305

PATIENT
  Age: 39 Year
  Sex: Female
  Weight: 43.1 kg

DRUGS (2)
  1. REMODULIN (2.5 MILLIGRAM/MILLILITERS, INJECTION FOR INFUSION) (TREPROSTINIL SODIUM) [Suspect]
     Indication: COR PULMONALE CHRONIC
     Dosage: 0.058 UG/KG, 1 IN 1 MIN)
     Route: 041
     Dates: start: 20080201
  2. ADCIRCA (TADALAFIL) (UNKNOWN) [Concomitant]

REACTIONS (2)
  - Pulmonary hypertension [None]
  - Condition aggravated [None]
